FAERS Safety Report 6807419-X (Version None)
Quarter: 2010Q2

REPORT INFORMATION
  Report Type: 
  Country: None (occurrence: None)
  Receive Date: 20100629
  Receipt Date: 20080919
  Transmission Date: 20101027
  Serious: No
  Sender: FDA-Public Use
  Company Number: US-PFIZER INC-2008066069

PATIENT
  Sex: Female
  Weight: 74.5 kg

DRUGS (3)
  1. REVATIO [Suspect]
     Indication: PULMONARY ARTERIAL HYPERTENSION
     Dates: start: 20080723
  2. OXYGEN [Suspect]
     Indication: PULMONARY ARTERIAL HYPERTENSION
     Dates: start: 20080701
  3. LEVOTHYROXINE SODIUM [Concomitant]

REACTIONS (1)
  - MENORRHAGIA [None]
